FAERS Safety Report 19785547 (Version 2)
Quarter: 2021Q4

REPORT INFORMATION
  Report Type: Spontaneous
  Country: DE (occurrence: DE)
  Receive Date: 20210903
  Receipt Date: 20211228
  Transmission Date: 20220303
  Serious: Yes (Hospitalization, Other)
  Sender: FDA-Public Use
  Company Number: DE-NOVARTISPH-NVSC2021DE196787

PATIENT
  Age: 62 Year
  Sex: Female

DRUGS (5)
  1. AZITHROMYCIN [Suspect]
     Active Substance: AZITHROMYCIN
     Indication: Pneumonia
     Dosage: UNK, UNKNOWN
     Route: 065
  2. AZITHROMYCIN [Suspect]
     Active Substance: AZITHROMYCIN
     Route: 065
  3. DIPHTHERIA AND TETANUS TOXOIDS AND ACELLULAR PERTUSSIS VACCINE ADSORBE [Suspect]
     Active Substance: DIPHTHERIA AND TETANUS TOXOIDS AND ACELLULAR PERTUSSIS VACCINE ADSORBED
     Indication: Prophylaxis
     Dosage: UNK, UNKNOWN
     Route: 030
     Dates: start: 20180926
  4. AMPICILLIN AND SULBACTAM [Suspect]
     Active Substance: AMPICILLIN SODIUM\SULBACTAM SODIUM
     Indication: Pneumonia
     Dosage: UNK, UNKNOWN
     Route: 065
  5. AMPICILLIN AND SULBACTAM [Suspect]
     Active Substance: AMPICILLIN SODIUM\SULBACTAM SODIUM
     Indication: Upper respiratory tract infection
     Route: 065

REACTIONS (18)
  - Acute disseminated encephalomyelitis [Unknown]
  - Upper respiratory tract infection [Unknown]
  - Pneumonia [Unknown]
  - Pyrexia [Unknown]
  - General physical health deterioration [Unknown]
  - Hemiparesis [Unknown]
  - Meningoencephalitis bacterial [Unknown]
  - Meningitis bacterial [Unknown]
  - Brain oedema [Unknown]
  - Depressed level of consciousness [Recovering/Resolving]
  - Central nervous system lesion [Unknown]
  - Gait disturbance [Unknown]
  - Aphasia [Recovered/Resolved]
  - White matter lesion [Unknown]
  - Monoparesis [Recovered/Resolved]
  - Meningism [Unknown]
  - Inflammation [Unknown]
  - Somnolence [Unknown]
